FAERS Safety Report 12948094 (Version 1)
Quarter: 2016Q4

REPORT INFORMATION
  Report Type: Spontaneous
  Country: US (occurrence: US)
  Receive Date: 20161117
  Receipt Date: 20161117
  Transmission Date: 20170207
  Serious: No
  Sender: FDA-Public Use
  Company Number: US-AUROBINDO-AUR-APU-2016-09244

PATIENT
  Sex: Male
  Weight: 70.75 kg

DRUGS (3)
  1. VIREAD [Concomitant]
     Active Substance: TENOFOVIR DISOPROXIL FUMARATE
     Indication: PRODUCT USED FOR UNKNOWN INDICATION
     Route: 065
  2. KALETRA [Concomitant]
     Active Substance: LOPINAVIR\RITONAVIR
     Indication: PRODUCT USED FOR UNKNOWN INDICATION
     Route: 065
  3. DIDANOSINE DELAYED-RELEASE CAPSULES (ENTERIC-COATED BEADLETS) 250 MG [Suspect]
     Active Substance: DIDANOSINE
     Indication: HIV INFECTION
     Dosage: 1 DF, DAILY IN THE MORNING
     Route: 065

REACTIONS (3)
  - Drug administration error [Unknown]
  - Headache [Unknown]
  - Drug dose omission [Unknown]
